FAERS Safety Report 5349955-1 (Version None)
Quarter: 2007Q2

REPORT INFORMATION
  Report Type: 
  Country: None (occurrence: None)
  Receive Date: 20070607
  Receipt Date: 20070524
  Transmission Date: 20071010
  Serious: Yes (Other)
  Sender: FDA-Public Use
  Company Number: US-SHR-US-2007-002492

PATIENT
  Age: 45 Year
  Sex: Female
  Weight: 73 kg

DRUGS (1)
  1. BETASERON [Suspect]
     Indication: PROGRESSIVE MULTIPLE SCLEROSIS
     Dosage: 8 MIU, EVERY 2D
     Route: 058
     Dates: start: 20060714, end: 20070201

REACTIONS (6)
  - DEPRESSION [None]
  - INJECTION SITE REACTION [None]
  - RASH MACULAR [None]
  - TREMOR [None]
  - VISUAL FIELD DEFECT [None]
  - WEIGHT INCREASED [None]
